FAERS Safety Report 5502901-X (Version None)
Quarter: 2007Q4

REPORT INFORMATION
  Report Type: 
  Country: None (occurrence: None)
  Receive Date: 20071031
  Receipt Date: 20070822
  Transmission Date: 20080405
  Serious: Yes (Hospitalization)
  Sender: FDA-Public Use
  Company Number: US-ASTRAZENECA-2007UW18718

PATIENT
  Age: 21 Year
  Sex: Male
  Weight: 30 kg

DRUGS (17)
  1. NEXIUM [Suspect]
     Indication: REFLUX OESOPHAGITIS
     Route: 042
     Dates: start: 20070729, end: 20070813
  2. KEPPRA [Suspect]
     Indication: CONVULSION
     Route: 042
     Dates: start: 20070712, end: 20070803
  3. FLUCONAZOLE [Suspect]
     Indication: CANDIDIASIS
     Route: 042
     Dates: start: 20070729, end: 20070803
  4. ATIVAN [Suspect]
     Indication: AGITATION
     Dates: start: 20070701
  5. CLONIDINE [Suspect]
     Indication: NEURALGIA
     Route: 061
     Dates: start: 20070724, end: 20070803
  6. METHADONE HCL [Suspect]
     Indication: DRUG WITHDRAWAL SYNDROME
     Route: 048
     Dates: start: 20070729, end: 20070803
  7. METHADONE HCL [Suspect]
     Indication: PAIN
     Route: 048
     Dates: start: 20070729, end: 20070803
  8. DIAZEPAM [Suspect]
     Indication: AGITATION
     Route: 042
     Dates: start: 20070701
  9. DEMEROL [Suspect]
     Indication: PAIN
     Dosage: 25 TO 50 MG EVERY TWO HOURS
     Route: 042
     Dates: start: 20070730, end: 20070803
  10. PAXIL [Suspect]
     Indication: DEPRESSION
     Route: 048
     Dates: start: 20070725, end: 20070803
  11. PEPCID [Suspect]
     Route: 042
     Dates: start: 20070701
  12. CHLORAL HYDRATE [Concomitant]
     Indication: SEDATION
     Dates: start: 20070726, end: 20070803
  13. UNASYN [Concomitant]
     Indication: STAPHYLOCOCCAL INFECTION
     Route: 042
     Dates: start: 20070725, end: 20070803
  14. BISACODYL [Concomitant]
     Indication: CONSTIPATION
     Route: 054
     Dates: start: 20070706, end: 20070803
  15. DIAZEPAM [Concomitant]
     Route: 042
     Dates: start: 20070729, end: 20070803
  16. DEXMEDETOMIDINE [Concomitant]
     Indication: SEDATION
     Route: 042
     Dates: start: 20070729, end: 20070801
  17. KETAMINE HCL [Concomitant]
     Indication: SEDATION
     Dosage: 10-30 MG
     Route: 042
     Dates: start: 20070726, end: 20070803

REACTIONS (1)
  - PANCREATITIS [None]
